FAERS Safety Report 8161364-9 (Version None)
Quarter: 2012Q1

REPORT INFORMATION
  Report Type: 
  Country: None (occurrence: None)
  Receive Date: 20120224
  Receipt Date: 20120221
  Transmission Date: 20120608
  Serious: Yes (Death, Hospitalization)
  Sender: FDA-Public Use
  Company Number: PHHY2010NZ86772

PATIENT
  Sex: Female

DRUGS (10)
  1. VENTOLIN [Concomitant]
  2. ENOXAPARIN [Concomitant]
  3. NORTRIPTYLINE HCL [Concomitant]
  4. MORPHINE [Concomitant]
  5. CLOZARIL [Suspect]
     Indication: SCHIZOPHRENIA
     Dosage: 75 MG, DAILY (25 MG 0800 AND 50 MG 1200)
     Route: 048
     Dates: start: 20100507, end: 20101209
  6. FLUTICASONE PROPIONATE [Concomitant]
  7. LORAZEPAM [Concomitant]
  8. CALCIFEROL [Concomitant]
  9. CALCIUM [Concomitant]
  10. CIPROFLOXACIN [Concomitant]

REACTIONS (6)
  - MYOCARDIAL INFARCTION [None]
  - ABDOMINAL PAIN [None]
  - HEPATIC CANCER METASTATIC [None]
  - PNEUMONIA [None]
  - CARDIAC FAILURE CONGESTIVE [None]
  - CARDIAC FAILURE [None]
